FAERS Safety Report 16291093 (Version 1)
Quarter: 2019Q2

REPORT INFORMATION
  Report Type: Spontaneous
  Country: US (occurrence: US)
  Receive Date: 20190509
  Receipt Date: 20190509
  Transmission Date: 20190711
  Serious: No
  Sender: FDA-Public Use
  Company Number: US-PFIZER INC-2019195601

PATIENT
  Age: 50 Year
  Sex: Female

DRUGS (2)
  1. CEPHALEXIN. [Suspect]
     Active Substance: CEPHALEXIN
     Dosage: UNK
  2. CEFUROXIME. [Suspect]
     Active Substance: CEFUROXIME
     Dosage: UNK

REACTIONS (1)
  - Drug hypersensitivity [Unknown]
